FAERS Safety Report 8250272-0 (Version None)
Quarter: 2012Q2

REPORT INFORMATION
  Report Type: 
  Country: None (occurrence: None)
  Receive Date: 20120402
  Receipt Date: 20120326
  Transmission Date: 20120825
  Serious: No
  Sender: FDA-Public Use
  Company Number: DE-B.I. PHARMACEUTICALS,INC./RIDGEFIELD-2011-DE-06736DE

PATIENT
  Sex: Female

DRUGS (5)
  1. TORSEMIDE [Concomitant]
     Dosage: 5 MG
     Route: 048
     Dates: start: 20110815, end: 20110819
  2. PRADAXA [Suspect]
     Indication: ATRIAL FIBRILLATION
     Dosage: 220 MG
     Dates: start: 20110816, end: 20110818
  3. TORSEMIDE [Concomitant]
     Dosage: 1.25 MG
  4. BISOPROLOL FUMARATE [Concomitant]
     Dosage: 5 MG
     Route: 048
     Dates: start: 20110815, end: 20110819
  5. BISOPROLOL FUMARATE [Concomitant]
     Dosage: 5 MG

REACTIONS (2)
  - BLADDER MASS [None]
  - HAEMATURIA [None]
